FAERS Safety Report 9433584 (Version 1)
Quarter: 2013Q3

REPORT INFORMATION
  Report Type: Report from Study
  Country: IN (occurrence: IN)
  Receive Date: 20130731
  Receipt Date: 20130731
  Transmission Date: 20140515
  Serious: Yes (Hospitalization)
  Sender: FDA-Public Use
  Company Number: PHHY2013IN080773

PATIENT
  Age: 56 Year
  Sex: Female

DRUGS (4)
  1. ACLASTA [Suspect]
     Indication: OSTEOGENESIS IMPERFECTA
     Dosage: 5 MG/YEAR
     Route: 042
     Dates: start: 20110529
  2. ACLASTA [Suspect]
     Dosage: 5 MG/YEAR
     Route: 042
     Dates: start: 20120621
  3. ACLASTA [Suspect]
     Dosage: 5 MG/YEAR
     Route: 042
     Dates: start: 20130720
  4. CITROMACALVIT [Concomitant]
     Indication: MINERAL SUPPLEMENTATION
     Dosage: UNK
     Route: 048
     Dates: start: 20110530

REACTIONS (5)
  - Hip fracture [Unknown]
  - Femoral neck fracture [Unknown]
  - Eye irritation [Recovered/Resolved]
  - Pyrexia [Recovered/Resolved]
  - Pain in extremity [Recovered/Resolved]
